FAERS Safety Report 23685260 (Version 1)
Quarter: 2024Q1

REPORT INFORMATION
  Report Type: Spontaneous
  Country: FR (occurrence: FR)
  Receive Date: 20240329
  Receipt Date: 20240329
  Transmission Date: 20240410
  Serious: Yes (Hospitalization)
  Sender: FDA-Public Use
  Company Number: None

PATIENT
  Age: 71 Year
  Sex: Male
  Weight: 52 kg

DRUGS (23)
  1. FLUOROURACIL [Suspect]
     Active Substance: FLUOROURACIL
     Indication: Adenocarcinoma gastric
     Dosage: C2  2700 MG OVER 46H
     Dates: start: 20231004, end: 20231004
  2. OXALIPLATIN [Suspect]
     Active Substance: OXALIPLATIN
     Indication: Adenocarcinoma gastric
     Dosage: C1  110 MG SUR 2H
     Dates: start: 20230816, end: 20230816
  3. VECTIBIX [Suspect]
     Active Substance: PANITUMUMAB
     Indication: Adenocarcinoma gastric
     Dosage: C6 250 MG SUR 1H
     Dates: start: 20240219, end: 20240219
  4. LENOGRASTIM [Suspect]
     Active Substance: LENOGRASTIM
     Indication: Neutropenia
     Dosage: 34 MUI/JOUR
     Dates: start: 20240216, end: 20240217
  5. FLUOROURACIL [Suspect]
     Active Substance: FLUOROURACIL
     Indication: Adenocarcinoma gastric
     Dosage: C4  2600 MG OVER 46H
     Dates: start: 20240111, end: 20240111
  6. FLUOROURACIL [Suspect]
     Active Substance: FLUOROURACIL
     Indication: Adenocarcinoma gastric
     Dosage: C1 650 MG IN 10 MINUTES THEN 3900 MG IN 46H.
     Dates: start: 20230816, end: 20230816
  7. FLUOROURACIL [Suspect]
     Active Substance: FLUOROURACIL
     Indication: Adenocarcinoma gastric
     Dosage: C6 2230 MG OVER 46H
     Dates: start: 20240219, end: 20240219
  8. FLUOROURACIL [Suspect]
     Active Substance: FLUOROURACIL
     Indication: Adenocarcinoma gastric
     Dosage: C1 2700 MG OVER 46H
     Dates: start: 20230920, end: 20230920
  9. FLUOROURACIL [Suspect]
     Active Substance: FLUOROURACIL
     Indication: Adenocarcinoma gastric
     Dosage: C5 2250 MG OVER 46H
     Dates: start: 20240125, end: 20240125
  10. FLUOROURACIL [Suspect]
     Active Substance: FLUOROURACIL
     Indication: Adenocarcinoma gastric
     Dosage: C2  2700 MG OVER 46H
     Dates: start: 20230906, end: 20230906
  11. FLUOROURACIL [Suspect]
     Active Substance: FLUOROURACIL
     Indication: Adenocarcinoma gastric
     Dosage: C3 2600 MG OVER 46H
     Dates: start: 20231018, end: 20231018
  12. OXALIPLATIN [Suspect]
     Active Substance: OXALIPLATIN
     Indication: Adenocarcinoma gastric
     Dosage: C3 106 MG OVER 2H
     Dates: start: 20231018, end: 20231018
  13. OXALIPLATIN [Suspect]
     Active Substance: OXALIPLATIN
     Indication: Adenocarcinoma gastric
     Dosage: C2 109 MG OVER 2HSUR 2H
     Dates: start: 20231004, end: 20231004
  14. OXALIPLATIN [Suspect]
     Active Substance: OXALIPLATIN
     Indication: Adenocarcinoma gastric
     Dosage: C5 106 MG OVER 2H
     Dates: start: 20240125, end: 20240125
  15. OXALIPLATIN [Suspect]
     Active Substance: OXALIPLATIN
     Indication: Adenocarcinoma gastric
     Dosage: C1 109 MG OVER 2H
     Dates: start: 20230920, end: 20230920
  16. OXALIPLATIN [Suspect]
     Active Substance: OXALIPLATIN
     Indication: Adenocarcinoma gastric
     Dosage: C2 110 MG OVER 2H
     Dates: start: 20230906, end: 20230906
  17. OXALIPLATIN [Suspect]
     Active Substance: OXALIPLATIN
     Indication: Adenocarcinoma gastric
     Dosage: C6 105 MG OVER 2H
     Dates: start: 20240219, end: 20240219
  18. OXALIPLATIN [Suspect]
     Active Substance: OXALIPLATIN
     Indication: Adenocarcinoma gastric
     Dosage: C4 106 MG OVER 2H
     Dates: start: 20240111, end: 20240111
  19. VECTIBIX [Suspect]
     Active Substance: PANITUMUMAB
     Indication: Adenocarcinoma gastric
     Dosage: C2 335 MG OVER 1H
     Dates: start: 20231004, end: 20231004
  20. VECTIBIX [Suspect]
     Active Substance: PANITUMUMAB
     Indication: Adenocarcinoma gastric
     Dosage: C1 335 MG OVER 1H
     Dates: start: 20230920, end: 20230920
  21. VECTIBIX [Suspect]
     Active Substance: PANITUMUMAB
     Indication: Adenocarcinoma gastric
     Dosage: C4 320 MG OVER 1H
     Dates: start: 20240111, end: 20240111
  22. VECTIBIX [Suspect]
     Active Substance: PANITUMUMAB
     Indication: Adenocarcinoma gastric
     Dosage: C5 320 MG OVER 1H
     Dates: start: 20240125, end: 20240125
  23. VECTIBIX [Suspect]
     Active Substance: PANITUMUMAB
     Indication: Adenocarcinoma gastric
     Dosage: C3 320 MG OVER 1H
     Dates: start: 20231018, end: 20231018

REACTIONS (3)
  - Acute kidney injury [Recovered/Resolved]
  - Eosinophilia [Recovered/Resolved]
  - Rash maculo-papular [Recovering/Resolving]

NARRATIVE: CASE EVENT DATE: 20240219
